FAERS Safety Report 18394856 (Version 1)
Quarter: 2020Q4

REPORT INFORMATION
  Report Type: Spontaneous
  Country: IT (occurrence: IT)
  Receive Date: 20201017
  Receipt Date: 20201017
  Transmission Date: 20210114
  Serious: Yes (Death, Other)
  Sender: FDA-Public Use
  Company Number: NVSC2020IT278830

PATIENT
  Age: 69 Year
  Sex: Male

DRUGS (1)
  1. MIDOSTAURIN [Suspect]
     Active Substance: MIDOSTAURIN
     Indication: SYSTEMIC MASTOCYTOSIS
     Dosage: 10 MG, Q12H
     Route: 048
     Dates: start: 201706

REACTIONS (7)
  - Myelodysplastic syndrome [Unknown]
  - Anaemia [Unknown]
  - Septic shock [Fatal]
  - Therapy partial responder [Unknown]
  - Acute myeloid leukaemia [Unknown]
  - Thrombocytopenia [Unknown]
  - Neutropenia [Unknown]
